FAERS Safety Report 4541617-3 (Version None)
Quarter: 2004Q4

REPORT INFORMATION
  Report Type: 
  Country: None (occurrence: None)
  Receive Date: 20041227
  Receipt Date: 20041213
  Transmission Date: 20050328
  Serious: Yes (Life-Threatening, Hospitalization)
  Sender: FDA-Public Use
  Company Number: RENA-10849

PATIENT
  Age: 53 Year
  Sex: Male
  Weight: 72 kg

DRUGS (12)
  1. RENAGEL [Suspect]
     Indication: HYPERPHOSPHATAEMIA
     Dosage: 1 G TID PO
     Route: 048
     Dates: start: 20030910, end: 20031030
  2. LASIX [Concomitant]
  3. ADALAT [Concomitant]
  4. ALLOPURINOL [Concomitant]
  5. CYANOCOBALAMIN [Concomitant]
  6. NORVASC [Concomitant]
  7. ALDOMET [Concomitant]
  8. ASPIRIN [Concomitant]
  9. BLOPRESS [Concomitant]
  10. MEXITIL [Concomitant]
  11. EPOGN [Concomitant]
  12. OXAROL (MAXACALCITOL) [Concomitant]

REACTIONS (4)
  - C-REACTIVE PROTEIN INCREASED [None]
  - ILEAL STENOSIS [None]
  - INTESTINAL OBSTRUCTION [None]
  - PERITONITIS [None]
